FAERS Safety Report 16026495 (Version 2)
Quarter: 2019Q3

REPORT INFORMATION
  Report Type: Spontaneous
  Country: CA (occurrence: CA)
  Receive Date: 20190302
  Receipt Date: 20190910
  Transmission Date: 20191004
  Serious: Yes (Other)
  Sender: FDA-Public Use
  Company Number: CA-009507513-1902CAN012168

PATIENT
  Age: 75 Year
  Sex: Female
  Weight: 73 kg

DRUGS (5)
  1. CELEXA [Concomitant]
     Active Substance: CITALOPRAM HYDROBROMIDE
  2. PREGNYL [Suspect]
     Active Substance: CHORIOGONADOTROPIN ALFA
     Indication: WEIGHT CONTROL
     Dosage: 15 GTT DROPS, TID (POWDER FOR SOLUTION INTRAMUSCULAR)
     Route: 048
  3. CITALOPRAM HYDROBROMIDE. [Concomitant]
     Active Substance: CITALOPRAM HYDROBROMIDE
  4. PANTOPRAZOLE [Concomitant]
     Active Substance: PANTOPRAZOLE
  5. ZOPICLONE [Concomitant]
     Active Substance: ZOPICLONE

REACTIONS (4)
  - Product use issue [Unknown]
  - Impaired driving ability [Unknown]
  - Depressed level of consciousness [Unknown]
  - Product use in unapproved indication [Unknown]
